FAERS Safety Report 5562492-4 (Version None)
Quarter: 2007Q4

REPORT INFORMATION
  Report Type: 
  Country: None (occurrence: None)
  Receive Date: 20071216
  Receipt Date: 20071210
  Transmission Date: 20080405
  Serious: Yes (Hospitalization)
  Sender: FDA-Public Use
  Company Number: JP-ALLERGAN-0713706US

PATIENT
  Sex: Female

DRUGS (8)
  1. BOTULINUM TOXIN TYPE A - GENERAL [Suspect]
     Indication: TORTICOLLIS
     Dosage: 90 UNITS, SINGLE
     Route: 030
     Dates: start: 20070814, end: 20070814
  2. BOTULINUM TOXIN TYPE A - GENERAL [Suspect]
     Dosage: 85 UNITS, SINGLE
     Route: 030
     Dates: start: 20070515, end: 20070515
  3. BOTULINUM TOXIN TYPE A - GENERAL [Suspect]
     Dosage: 60 UNITS, SINGLE
     Route: 030
     Dates: start: 20070206, end: 20070206
  4. ETHOSUXIMIDE [Concomitant]
  5. ZONISAMIDE [Concomitant]
  6. CARBAMAZEPINE [Concomitant]
  7. CLOBAZAM [Concomitant]
  8. CAFFEINE AND SODIUM BENZOATE [Concomitant]

REACTIONS (1)
  - INTESTINAL MALROTATION [None]
